FAERS Safety Report 6028760-7 (Version None)
Quarter: 2009Q1

REPORT INFORMATION
  Report Type: 
  Country: None (occurrence: None)
  Receive Date: 20090106
  Receipt Date: 20090106
  Transmission Date: 20090719
  Serious: Yes (Other)
  Sender: FDA-Public Use
  Company Number: A0762330A

PATIENT
  Age: 47 Year
  Sex: Male

DRUGS (4)
  1. LAMICTAL [Suspect]
     Indication: BIPOLAR DISORDER
     Route: 048
     Dates: start: 20070101, end: 20080701
  2. LAMOTRIGINE [Suspect]
     Indication: BIPOLAR DISORDER
     Route: 048
     Dates: start: 20080701
  3. SYNTHROID [Concomitant]
  4. SEROQUEL [Concomitant]

REACTIONS (4)
  - DRUG ADMINISTRATION ERROR [None]
  - PARANOIA [None]
  - PETIT MAL EPILEPSY [None]
  - WRONG TECHNIQUE IN DRUG USAGE PROCESS [None]
